FAERS Safety Report 12640880 (Version 1)
Quarter: 2016Q3

REPORT INFORMATION
  Report Type: Not Available
  Country: DK (occurrence: DK)
  Receive Date: 20160810
  Receipt Date: 20160810
  Transmission Date: 20161109
  Serious: Yes (Hospitalization)
  Sender: FDA-Public Use
  Company Number: DK-ANIPHARMA-2016-DK-000001

PATIENT
  Age: 62 Year
  Sex: Female

DRUGS (4)
  1. LITHIUM CARBONATE (NON-SPECIFIC) [Suspect]
     Active Substance: LITHIUM
     Dosage: 600 MG DAILY
     Route: 065
  2. LAMOTRIGINE. [Suspect]
     Active Substance: LAMOTRIGINE
     Dosage: 75 MG DAILY
     Route: 065
  3. VALPROIC ACID (NON-SPECIFIC) [Concomitant]
     Active Substance: VALPROIC ACID
     Dosage: 1500 MG DAILY
     Route: 065
  4. VENLAFAXINE [Concomitant]
     Active Substance: VENLAFAXINE HYDROCHLORIDE
     Dosage: 375 MG DAILY
     Route: 065

REACTIONS (3)
  - Toxicity to various agents [Recovered/Resolved]
  - Gaze palsy [Recovered/Resolved]
  - Nystagmus [Recovered/Resolved]
